FAERS Safety Report 8094119-4 (Version None)
Quarter: 2012Q1

REPORT INFORMATION
  Report Type: 
  Country: None (occurrence: None)
  Receive Date: 20120130
  Receipt Date: 20120130
  Transmission Date: 20120608
  Serious: Yes (Other)
  Sender: FDA-Public Use
  Company Number: None

PATIENT
  Sex: Female
  Weight: 112.03 kg

DRUGS (1)
  1. MULTIHANCE [Suspect]
     Indication: VERTIGO
     Dosage: 20 ML
     Route: 042
     Dates: start: 20120126, end: 20120126

REACTIONS (4)
  - THROAT IRRITATION [None]
  - LIP SWELLING [None]
  - DRUG HYPERSENSITIVITY [None]
  - EYE SWELLING [None]
